FAERS Safety Report 8618548-2 (Version None)
Quarter: 2012Q3

REPORT INFORMATION
  Report Type: 
  Country: None (occurrence: None)
  Receive Date: 20120824
  Receipt Date: 20120821
  Transmission Date: 20120928
  Serious: Yes (Hospitalization)
  Sender: FDA-Public Use
  Company Number: US-PFIZER INC-2012106651

PATIENT
  Age: 68 Year
  Sex: Male

DRUGS (1)
  1. VFEND [Suspect]
     Indication: LUNG TRANSPLANT
     Dosage: 200 MG, 2X/DAY
     Dates: start: 20120213

REACTIONS (1)
  - HEPATIC ENZYME INCREASED [None]
